FAERS Safety Report 10575558 (Version 1)
Quarter: 2014Q4

REPORT INFORMATION
  Report Type: Spontaneous
  Country: AU (occurrence: None)
  Receive Date: 20141110
  Receipt Date: 20141110
  Transmission Date: 20150529
  Serious: Yes (Other)
  Sender: FDA-Public Use
  Company Number: None

PATIENT
  Age: 32 Year
  Sex: Female
  Weight: 55 kg

DRUGS (3)
  1. DRAXIMAGE MAA [Suspect]
     Active Substance: ALBUMIN AGGREGATED\TECHNETIUM TC-99M ALBUMIN AGGREGATED
     Indication: SCAN
     Dosage: 1X165 MBQ/TOTAL IV (NOS)
     Route: 042
     Dates: start: 20140912
  2. DRAXIMAGE MAA [Suspect]
     Active Substance: ALBUMIN AGGREGATED\TECHNETIUM TC-99M ALBUMIN AGGREGATED
     Indication: PULMONARY EMBOLISM
     Dosage: 1X165 MBQ/TOTAL IV (NOS)
     Route: 042
     Dates: start: 20140912
  3. VENTOLIN (INN: SALBUTAMOL) [Concomitant]

REACTIONS (2)
  - Anaphylactic reaction [None]
  - No therapeutic response [None]

NARRATIVE: CASE EVENT DATE: 20140912
